FAERS Safety Report 11511955 (Version 2)
Quarter: 2015Q3

REPORT INFORMATION
  Report Type: Report from Study
  Country: DE (occurrence: DE)
  Receive Date: 20150916
  Receipt Date: 20150916
  Transmission Date: 20151125
  Serious: Yes (Hospitalization)
  Sender: FDA-Public Use
  Company Number: DE-ROCHE-1633204

PATIENT
  Age: 76 Year
  Sex: Male
  Weight: 68 kg

DRUGS (3)
  1. TEMSIROLIMUS [Suspect]
     Active Substance: TEMSIROLIMUS
     Indication: PRODUCT USED FOR UNKNOWN INDICATION
     Dosage: ON 22/JUN/2015, MOST RECENT DOSE OF TEMSIROLIMUS  WAS RECEIVED.
     Route: 065
     Dates: start: 20150310, end: 20150629
  2. RITUXIMAB [Suspect]
     Active Substance: RITUXIMAB
     Indication: PRODUCT USED FOR UNKNOWN INDICATION
     Dosage: ON 15/JUN/2015, MOST RECENT DOSE OF RITUXIMAB WAS RECEIVED.
     Route: 065
     Dates: start: 20150309
  3. BENDAMUSTINE [Suspect]
     Active Substance: BENDAMUSTINE
     Indication: PRODUCT USED FOR UNKNOWN INDICATION
     Dosage: ON 16/JUN/2015, MOST RECENT DOSE OF BENDAMUSTINE WAS RECEIVED.
     Route: 065
     Dates: start: 20150309

REACTIONS (1)
  - Enteritis [Recovered/Resolved]

NARRATIVE: CASE EVENT DATE: 20150703
